FAERS Safety Report 6418165-9 (Version None)
Quarter: 2009Q4

REPORT INFORMATION
  Report Type: 
  Country: None (occurrence: None)
  Receive Date: 20091028
  Receipt Date: 20091023
  Transmission Date: 20100525
  Serious: Yes (Death, Life-Threatening, Hospitalization, Other)
  Sender: FDA-Public Use
  Company Number: US-ELI_LILLY_AND_COMPANY-US200907003530

PATIENT
  Sex: Male

DRUGS (8)
  1. ALIMTA [Suspect]
     Indication: NON-SMALL CELL LUNG CANCER METASTATIC
     Dosage: 500 MG/M2, OTHER
     Route: 042
     Dates: start: 20090709, end: 20090701
  2. FOLIC ACID [Concomitant]
     Indication: PREMEDICATION
     Dosage: 1 MG, DAILY (1/D)
     Dates: start: 20090709, end: 20090715
  3. VITAMIN B-12 [Concomitant]
     Indication: PREMEDICATION
     Dosage: 100 MG, UNK
     Dates: start: 20090709, end: 20090709
  4. DEXAMETHASONE [Concomitant]
     Dosage: 4 MG, UNK
     Dates: start: 20090604, end: 20090715
  5. VICODIN [Concomitant]
     Indication: PAIN
     Dosage: UNK, AS NEEDED
     Dates: start: 20090506, end: 20090715
  6. SPIRIVA [Concomitant]
     Indication: DYSPNOEA
     Dosage: UNK, DAILY (1/D)
     Dates: start: 20090618, end: 20090715
  7. INDOCIN [Concomitant]
     Dosage: 75 MG, UNK
     Dates: start: 20090220, end: 20090715
  8. COMPAZINE [Concomitant]
     Indication: NAUSEA
     Dosage: 10 MG, AS NEEDED
     Dates: start: 20090709, end: 20090715

REACTIONS (13)
  - BACTERIAL INFECTION [None]
  - CELLULITIS [None]
  - DEPRESSED MOOD [None]
  - DERMATITIS BULLOUS [None]
  - DISEASE PROGRESSION [None]
  - DRUG HYPERSENSITIVITY [None]
  - ERYTHEMA [None]
  - NECROTISING FASCIITIS [None]
  - NEUTROPENIA [None]
  - SEPSIS [None]
  - SKIN EXFOLIATION [None]
  - STEVENS-JOHNSON SYNDROME [None]
  - THROMBOCYTOPENIA [None]
